FAERS Safety Report 7809352-3 (Version None)
Quarter: 2011Q4

REPORT INFORMATION
  Report Type: 
  Country: None (occurrence: None)
  Receive Date: 20111012
  Receipt Date: 20110628
  Transmission Date: 20120403
  Serious: Yes (Hospitalization)
  Sender: FDA-Public Use
  Company Number: DE-ELI_LILLY_AND_COMPANY-DE201106002760

PATIENT
  Sex: Male

DRUGS (5)
  1. METFORMIN HYDROCHLORIDE [Concomitant]
     Dosage: 500 MG, BID
     Route: 048
  2. BISOPROLOL [Concomitant]
     Dosage: UNK, UNKNOWN
  3. OMEPRAZOLE [Concomitant]
     Dosage: UNK, UNKNOWN
  4. BYETTA [Suspect]
     Indication: DIABETES MELLITUS
     Dosage: 10 UG, QD
     Route: 058
     Dates: start: 20110301, end: 20110601
  5. SIMVASTATIN [Concomitant]
     Dosage: UNK, UNKNOWN

REACTIONS (1)
  - BLOOD GLUCOSE INCREASED [None]
